FAERS Safety Report 7817268-1 (Version None)
Quarter: 2011Q4

REPORT INFORMATION
  Report Type: 
  Country: None (occurrence: None)
  Receive Date: 20111014
  Receipt Date: 20111014
  Transmission Date: 20120403
  Serious: Yes (Life-Threatening, Disabling, Other)
  Sender: FDA-Public Use
  Company Number: None

PATIENT
  Age: 67 Year
  Sex: Male
  Weight: 153.7694 kg

DRUGS (2)
  1. ACTOS [Suspect]
     Indication: BLOOD GLUCOSE DECREASED
     Dosage: 45MG ONE/A DAY
     Dates: start: 20080614, end: 20110712
  2. FUROSEMIDE [Suspect]
     Dosage: 60 MG 3 TIMES A DAY

REACTIONS (5)
  - MACULAR OEDEMA [None]
  - FATIGUE [None]
  - SWELLING [None]
  - FLUID RETENTION [None]
  - WEIGHT INCREASED [None]
